FAERS Safety Report 12238359 (Version 1)
Quarter: 2016Q2

REPORT INFORMATION
  Report Type: Spontaneous
  Country: US (occurrence: US)
  Receive Date: 20160405
  Receipt Date: 20160405
  Transmission Date: 20160815
  Serious: Yes (Death)
  Sender: FDA-Public Use
  Company Number: US-ASTELLAS-2016US012699

PATIENT
  Sex: Female

DRUGS (1)
  1. TARCEVA [Suspect]
     Active Substance: ERLOTINIB HYDROCHLORIDE
     Indication: SMALL CELL LUNG CANCER
     Dosage: 150 MG, UNKNOWN FREQ (PULSE DOSING).
     Route: 065
     Dates: start: 2014

REACTIONS (1)
  - Death [Fatal]
